FAERS Safety Report 5470919-1 (Version None)
Quarter: 2007Q3

REPORT INFORMATION
  Report Type: 
  Country: None (occurrence: None)
  Receive Date: 20070928
  Receipt Date: 20070924
  Transmission Date: 20080115
  Serious: Yes (Hospitalization)
  Sender: FDA-Public Use
  Company Number: DE-BAYER-200711045BVD

PATIENT
  Age: 55 Year
  Sex: Female
  Weight: 58 kg

DRUGS (13)
  1. NEXAVAR [Suspect]
     Indication: PHAEOCHROMOCYTOMA
     Dosage: AS USED: 400 MG
     Route: 048
     Dates: start: 20070801, end: 20070814
  2. NEXAVAR [Suspect]
     Dosage: TOTAL DAILY DOSE: 800 MG
     Route: 048
     Dates: start: 20070821, end: 20070912
  3. NEXAVAR [Suspect]
     Dosage: AS USED: 400 MG
     Route: 048
     Dates: start: 20070919
  4. CREON [Concomitant]
  5. ACYCLOVIR [Concomitant]
     Dosage: AS USED: 400 MG
  6. HYDROCORTISON [Concomitant]
  7. PANTOPRAZOLE SODIUM [Concomitant]
  8. TAVANIC [Concomitant]
  9. DIFLUCAN [Concomitant]
  10. MCP DROPS [Concomitant]
     Route: 048
  11. HALDOL DROPS [Concomitant]
     Route: 048
  12. DUROGESIC TTS [Concomitant]
  13. NOVALGIN [Concomitant]
     Route: 048

REACTIONS (2)
  - ABDOMINAL PAIN [None]
  - COLITIS [None]
